FAERS Safety Report 12377208 (Version 1)
Quarter: 2016Q2

REPORT INFORMATION
  Report Type: Spontaneous
  Country: US (occurrence: US)
  Receive Date: 20160517
  Receipt Date: 20160517
  Transmission Date: 20160815
  Serious: No
  Sender: FDA-Public Use
  Company Number: US-AMGEN-USASP2016061833

PATIENT
  Age: 53 Year
  Sex: Female

DRUGS (7)
  1. GLUCOSAMINE + CHONDROITIN          /01430901/ [Concomitant]
  2. VENTOLIN [Concomitant]
     Active Substance: ALBUTEROL SULFATE
  3. ENBREL [Suspect]
     Active Substance: ETANERCEPT
     Indication: ANKYLOSING SPONDYLITIS
     Dosage: 50 MG, QWK
     Route: 058
  4. DIFLUNISAL. [Concomitant]
     Active Substance: DIFLUNISAL
  5. SYMBICORT [Concomitant]
     Active Substance: BUDESONIDE\FORMOTEROL FUMARATE DIHYDRATE
  6. ZANAFLEX [Concomitant]
     Active Substance: TIZANIDINE HYDROCHLORIDE
  7. CYMBALTA [Concomitant]
     Active Substance: DULOXETINE HYDROCHLORIDE

REACTIONS (2)
  - Headache [Unknown]
  - Inflammation [Unknown]
